FAERS Safety Report 6488749-0 (Version None)
Quarter: 2009Q4

REPORT INFORMATION
  Report Type: 
  Country: None (occurrence: None)
  Receive Date: 20091210
  Receipt Date: 20090908
  Transmission Date: 20100525
  Serious: No
  Sender: FDA-Public Use
  Company Number: US-AMGEN-KDL363662

PATIENT
  Sex: Female

DRUGS (9)
  1. ENBREL [Suspect]
     Indication: PSORIASIS
     Route: 058
     Dates: start: 20070924, end: 20090724
  2. ENBREL [Suspect]
     Indication: PSORIATIC ARTHROPATHY
  3. METHOTREXATE [Concomitant]
  4. PROVENTIL [Concomitant]
  5. CELECOXIB [Concomitant]
     Route: 048
     Dates: start: 20090512
  6. DIPROLENE [Concomitant]
     Dates: start: 20080924
  7. BISOPROLOL FUMARATE AND HYDROCHLOROTHIAZIDE [Concomitant]
     Route: 048
  8. AVAPRO [Concomitant]
  9. ATARAX [Concomitant]
     Route: 048

REACTIONS (6)
  - FALL [None]
  - FLANK PAIN [None]
  - INFECTION [None]
  - JOINT INJURY [None]
  - MUSCULAR WEAKNESS [None]
  - STOMATITIS [None]
